FAERS Safety Report 7002959-5 (Version None)
Quarter: 2010Q3

REPORT INFORMATION
  Report Type: 
  Country: None (occurrence: None)
  Receive Date: 20100916
  Receipt Date: 20100903
  Transmission Date: 20110219
  Serious: Yes (Hospitalization, Other)
  Sender: FDA-Public Use
  Company Number: 2010AC000505

PATIENT
  Sex: Female

DRUGS (1)
  1. DIGOXIN [Suspect]
     Dosage: ; PO
     Dates: start: 20060301, end: 20080601

REACTIONS (5)
  - ANXIETY [None]
  - CARDIAC DISORDER [None]
  - ECONOMIC PROBLEM [None]
  - INJURY [None]
  - PAIN [None]
